FAERS Safety Report 6147154-7 (Version None)
Quarter: 2009Q2

REPORT INFORMATION
  Report Type: 
  Country: None (occurrence: None)
  Receive Date: 20090406
  Receipt Date: 20090330
  Transmission Date: 20091009
  Serious: Yes (Hospitalization)
  Sender: FDA-Public Use
  Company Number: CHPA2009US08199

PATIENT
  Age: 63 Year
  Sex: Female

DRUGS (2)
  1. VOLTAREN [Suspect]
     Indication: BACK PAIN
     Dosage: 2 G, BID, TOPICAL
     Route: 061
     Dates: start: 20090101
  2. COUMADIN [Concomitant]

REACTIONS (5)
  - DRUG ADMINISTERED AT INAPPROPRIATE SITE [None]
  - FAECES DISCOLOURED [None]
  - FLUID RETENTION [None]
  - GASTROINTESTINAL ULCER HAEMORRHAGE [None]
  - HYPERTENSION [None]
